FAERS Safety Report 8819934 (Version 3)
Quarter: 2012Q4

REPORT INFORMATION
  Report Type: 
  Country: US (occurrence: US)
  Receive Date: 20121001
  Receipt Date: 20121115
  Transmission Date: 20130627
  Serious: No
  Sender: FDA-Public Use
  Company Number: US-VERTEX PHARMACEUTICAL INC.-2012-021975

PATIENT
  Age: 63 Year
  Sex: Male
  Weight: 69 kg

DRUGS (3)
  1. INCIVEK [Suspect]
     Indication: HEPATITIS C
     Dosage: 750 mg, tid
     Route: 048
     Dates: start: 20120924
  2. PEGASYS [Suspect]
     Indication: HEPATITIS C
     Dosage: 180 ?g,weekly
     Route: 058
     Dates: start: 20120924
  3. RIBAVIRIN [Suspect]
     Indication: HEPATITIS C
     Dosage: 200 mg, bid
     Route: 048
     Dates: start: 20120924

REACTIONS (6)
  - Headache [Not Recovered/Not Resolved]
  - Constipation [Not Recovered/Not Resolved]
  - Epistaxis [Not Recovered/Not Resolved]
  - Dehydration [Not Recovered/Not Resolved]
  - Vomiting [Not Recovered/Not Resolved]
  - Nausea [Not Recovered/Not Resolved]
